FAERS Safety Report 9575513 (Version 1)
Quarter: 2013Q4

REPORT INFORMATION
  Report Type: Spontaneous
  Country: US (occurrence: US)
  Receive Date: 20131001
  Receipt Date: 20131001
  Transmission Date: 20140711
  Serious: No
  Sender: FDA-Public Use
  Company Number: US-AMGEN-USASP2012083563

PATIENT
  Age: 64 Year
  Sex: Female
  Weight: 89.8 kg

DRUGS (6)
  1. ENBREL [Suspect]
     Indication: RHEUMATOID ARTHRITIS
     Dosage: 50 MG, QWK
     Route: 058
  2. METHOTREXATE [Concomitant]
     Dosage: 1 G, UNK
  3. PLAQUENIL                          /00072602/ [Concomitant]
     Dosage: 200 MG, UNK
  4. LISINOPRIL [Concomitant]
     Dosage: 2.5 MG, UNK
  5. FOLIC ACID [Concomitant]
     Dosage: 1 MG, UNK
  6. LEXAPRO [Concomitant]
     Dosage: 5 MG, UNK

REACTIONS (1)
  - Viral upper respiratory tract infection [Recovered/Resolved]
